FAERS Safety Report 21918973 (Version 2)
Quarter: 2023Q1

REPORT INFORMATION
  Report Type: Spontaneous
  Country: FR (occurrence: FR)
  Receive Date: 20230127
  Receipt Date: 20230208
  Transmission Date: 20230418
  Serious: Yes (Life-Threatening)
  Sender: FDA-Public Use
  Company Number: FR-AFSSAPS-AM20222489

PATIENT
  Age: 54 Year
  Sex: Female
  Weight: 85 kg

DRUGS (6)
  1. MORPHINE [Suspect]
     Active Substance: MORPHINE
     Indication: Spinal anaesthesia
     Dosage: 100 MICROGRAM, TOTAL 1
     Route: 029
     Dates: start: 20221118, end: 20221118
  2. CHLORHEXIDINE HYDROCHLORIDE [Suspect]
     Active Substance: CHLORHEXIDINE HYDROCHLORIDE
     Indication: Infection prophylaxis
     Dosage: UNK
     Route: 003
     Dates: start: 20221118, end: 20221118
  3. CEFAZOLIN [Suspect]
     Active Substance: CEFAZOLIN
     Indication: Antibiotic prophylaxis
     Dosage: 4 GRAM, TOTAL 1
     Route: 040
     Dates: start: 20221118, end: 20221118
  4. SUFENTANIL [Suspect]
     Active Substance: SUFENTANIL
     Indication: Spinal anaesthesia
     Dosage: 2.5 MICROGRAM, TOTAL 1
     Route: 029
     Dates: start: 20221118, end: 20221118
  5. BUPIVACAINE HYDROCHLORIDE [Suspect]
     Active Substance: BUPIVACAINE HYDROCHLORIDE
     Indication: Spinal anaesthesia
     Dosage: 10 MILLIGRAM, TOTAL 1
     Route: 029
     Dates: start: 20221118, end: 20221118
  6. TRANEXAMIC ACID [Suspect]
     Active Substance: TRANEXAMIC ACID
     Indication: Haemorrhage prophylaxis
     Dosage: 1 GRAM, TOTAL 1
     Route: 040
     Dates: start: 20221118, end: 20221118

REACTIONS (1)
  - Anaphylactic shock [Recovered/Resolved]

NARRATIVE: CASE EVENT DATE: 20221118
